FAERS Safety Report 18424364 (Version 2)
Quarter: 2020Q4

REPORT INFORMATION
  Report Type: Spontaneous
  Country: US (occurrence: US)
  Receive Date: 20201026
  Receipt Date: 20201026
  Transmission Date: 20210114
  Serious: Yes (Death, Hospitalization)
  Sender: FDA-Public Use
  Company Number: US-ROCHE-2697788

PATIENT
  Sex: Female

DRUGS (3)
  1. XELODA [Suspect]
     Active Substance: CAPECITABINE
     Indication: BREAST CANCER FEMALE
     Route: 048
  2. TUKYSA [Suspect]
     Active Substance: TUCATINIB
     Indication: BREAST CANCER FEMALE
     Route: 065
  3. LISINOPRIL. [Concomitant]
     Active Substance: LISINOPRIL

REACTIONS (14)
  - Anxiety [Unknown]
  - Renal disorder [Unknown]
  - Liver disorder [Unknown]
  - Fluid retention [Unknown]
  - Stomatitis [Unknown]
  - Fatigue [Unknown]
  - Death [Fatal]
  - Somnolence [Unknown]
  - Abdominal cavity drainage [Unknown]
  - Hypotension [Unknown]
  - Dyspnoea exertional [Unknown]
  - Thinking abnormal [Unknown]
  - Decreased appetite [Unknown]
  - Diarrhoea [Unknown]
